FAERS Safety Report 4820067-6 (Version None)
Quarter: 2005Q4

REPORT INFORMATION
  Report Type: 
  Country: None (occurrence: None)
  Receive Date: 20051103
  Receipt Date: 20051024
  Transmission Date: 20060501
  Serious: Yes (Other)
  Sender: FDA-Public Use
  Company Number: US-ABBOTT-05P-163-0315847-00

PATIENT

DRUGS (2)
  1. NORVIR [Suspect]
     Indication: HIV INFECTION
     Route: 048
  2. TIPRANAVIR(APTIVUS) [Suspect]
     Indication: HIV INFECTION
     Route: 048

REACTIONS (1)
  - HAEMOLYTIC ANAEMIA [None]
